FAERS Safety Report 9843402 (Version 1)
Quarter: 2013Q4

REPORT INFORMATION
  Report Type: Spontaneous
  Country: US (occurrence: None)
  Receive Date: 20131223
  Receipt Date: 20131223
  Transmission Date: 20140711
  Serious: Yes (Other)
  Sender: FDA-Public Use
  Company Number: 220277LEO

PATIENT
  Age: 70 Year
  Sex: Male

DRUGS (6)
  1. PICATO [Suspect]
     Dosage: 1 IN 1 D TOPICAL
     Dates: start: 20130122, end: 20130124
  2. PRILOSEC (OMEPRAZOLE) (40MG) [Concomitant]
  3. LIPITOR (ATORVASTATIN CALCIUM) (40MG) [Suspect]
  4. VALTREX (VALACICLOVIR HYDROCHLORIDE) (400MG) [Concomitant]
  5. CO-210 (VITAMINS NDS) (TABLET) [Concomitant]
  6. MVI (MVI) (TABLET) [Concomitant]

REACTIONS (2)
  - Application site reaction [None]
  - Drug administered at inappropriate site [None]
